FAERS Safety Report 12331479 (Version 1)
Quarter: 2016Q2

REPORT INFORMATION
  Report Type: Spontaneous
  Country: US (occurrence: None)
  Receive Date: 20160503
  Receipt Date: 20160503
  Transmission Date: 20160815
  Serious: Yes (Life-Threatening, Disabling)
  Sender: FDA-Public Use
  Company Number: None

PATIENT
  Age: 3 Year
  Sex: Female
  Weight: 20.41 kg

DRUGS (1)
  1. CLINDAMYCIN 300 MG [Suspect]
     Active Substance: CLINDAMYCIN PHOSPHATE
     Indication: INFECTION
     Route: 048
     Dates: start: 20150410, end: 20150412

REACTIONS (3)
  - Nervous system disorder [None]
  - Eating disorder [None]
  - Jaw disorder [None]

NARRATIVE: CASE EVENT DATE: 20150412
